FAERS Safety Report 8300564-1 (Version None)
Quarter: 2012Q2

REPORT INFORMATION
  Report Type: 
  Country: None (occurrence: None)
  Receive Date: 20120420
  Receipt Date: 20120409
  Transmission Date: 20120825
  Serious: Yes (Death)
  Sender: FDA-Public Use
  Company Number: US-VALEANT-2012VX001708

PATIENT

DRUGS (5)
  1. FLUOROURACIL [Suspect]
     Dosage: DOSE UNIT:650
     Route: 065
  2. PACLITAXEL [Suspect]
     Dosage: DOSE UNIT:200
     Route: 065
  3. ALL OTHER THERAPEUTIC PRODUCTS [Concomitant]
     Route: 065
  4. NEUPOGEN [Concomitant]
     Route: 065
  5. CISPLATIN [Suspect]
     Dosage: DOSE UNIT:15
     Route: 065

REACTIONS (1)
  - PNEUMONITIS [None]
